FAERS Safety Report 8538161-5 (Version None)
Quarter: 2012Q3

REPORT INFORMATION
  Report Type: 
  Country: None (occurrence: None)
  Receive Date: 20120726
  Receipt Date: 20120612
  Transmission Date: 20120928
  Serious: Yes (Other)
  Sender: FDA-Public Use
  Company Number: US-009507513-2012SP027427

PATIENT

DRUGS (3)
  1. PEG-INTRON [Suspect]
     Indication: CHRONIC HEPATITIS
     Dosage: 150 MICROGRAMS, QW
     Route: 058
     Dates: start: 20120315
  2. REBETOL [Suspect]
     Dates: start: 20120315
  3. VICTRELIS [Suspect]
     Dates: start: 20120315

REACTIONS (1)
  - CONVULSION [None]
